FAERS Safety Report 11058535 (Version 1)
Quarter: 2015Q2

REPORT INFORMATION
  Report Type: Spontaneous
  Country: US (occurrence: None)
  Receive Date: 20150420
  Receipt Date: 20150420
  Transmission Date: 20150821
  Serious: No
  Sender: FDA-Public Use
  Company Number: AEGR001203

PATIENT
  Age: 79 Year
  Sex: Female
  Weight: 91.2 kg

DRUGS (1)
  1. JUXTAPID [Suspect]
     Active Substance: LOMITAPIDE MESYLATE
     Indication: TYPE IIA HYPERLIPIDAEMIA
     Route: 048
     Dates: start: 20150209, end: 20150220

REACTIONS (2)
  - Therapy cessation [None]
  - Musculoskeletal discomfort [None]

NARRATIVE: CASE EVENT DATE: 20150219
